FAERS Safety Report 7786346-8 (Version None)
Quarter: 2011Q3

REPORT INFORMATION
  Report Type: 
  Country: None (occurrence: None)
  Receive Date: 20110929
  Receipt Date: 20110923
  Transmission Date: 20111222
  Serious: Yes (Hospitalization)
  Sender: FDA-Public Use
  Company Number: PHHY2011US68674

PATIENT
  Sex: Female

DRUGS (12)
  1. GILENYA [Suspect]
     Indication: MULTIPLE SCLEROSIS RELAPSE
     Dosage: 0.5 MG, QD
     Route: 048
     Dates: start: 20110426, end: 20110815
  2. EFFEXOR [Concomitant]
     Dosage: 100 MG, BID
  3. BACLOFEN [Concomitant]
     Dosage: 10 MG, DAILY AT BEDTIME
     Route: 048
  4. LUNESTA [Concomitant]
     Dosage: 1 DF, AT BEDTIME
  5. NEURONTIN [Concomitant]
     Indication: PAIN IN EXTREMITY
     Dosage: 100 MG, TID
     Route: 048
  6. VITAMIN D [Concomitant]
  7. OMEPRAZOLE [Concomitant]
     Dosage: 20 MG, BID
  8. PROMETHAZINE [Concomitant]
     Dosage: UNK UKN, UNK
  9. ALBUTEROL [Concomitant]
     Dosage: UNK OT, PRN
  10. ESTRACE [Concomitant]
     Dosage: 1 MG, DAILY
  11. MARIJUANA [Concomitant]
  12. VITAMIN B COMPLEX CAP [Concomitant]

REACTIONS (16)
  - ABDOMINAL TENDERNESS [None]
  - MALAISE [None]
  - GASTROINTESTINAL INFECTION [None]
  - DIARRHOEA [None]
  - ANAEMIA [None]
  - NAUSEA [None]
  - C-REACTIVE PROTEIN INCREASED [None]
  - LEUKOPENIA [None]
  - ABDOMINAL PAIN [None]
  - CHILLS [None]
  - HAEMATOCHEZIA [None]
  - URINARY TRACT INFECTION [None]
  - COLITIS [None]
  - MONOCYTOSIS [None]
  - DIARRHOEA HAEMORRHAGIC [None]
  - GALLBLADDER ENLARGEMENT [None]
